FAERS Safety Report 9559770 (Version 2)
Quarter: 2013Q4

REPORT INFORMATION
  Report Type: Report from Study
  Country: JP (occurrence: JP)
  Receive Date: 20130927
  Receipt Date: 20131126
  Transmission Date: 20140711
  Serious: Yes (Hospitalization)
  Sender: FDA-Public Use
  Company Number: JP-JNJFOC-20130911969

PATIENT
  Age: 57 Year
  Sex: Female
  Weight: 68 kg

DRUGS (18)
  1. SIMPONI [Suspect]
     Indication: RHEUMATOID ARTHRITIS
     Route: 058
     Dates: start: 20130409
  2. SIMPONI [Suspect]
     Indication: RHEUMATOID ARTHRITIS
     Route: 058
     Dates: start: 20121023, end: 20121023
  3. SIMPONI [Suspect]
     Indication: RHEUMATOID ARTHRITIS
     Route: 058
     Dates: start: 20121120, end: 20121120
  4. SIMPONI [Suspect]
     Indication: RHEUMATOID ARTHRITIS
     Route: 058
     Dates: start: 20121218, end: 20121218
  5. SIMPONI [Suspect]
     Indication: RHEUMATOID ARTHRITIS
     Route: 058
     Dates: start: 20130312, end: 20130312
  6. METHOTREXATE [Suspect]
     Indication: RHEUMATOID ARTHRITIS
     Route: 065
  7. PREDNISOLONE [Suspect]
     Indication: RHEUMATOID ARTHRITIS
     Route: 048
  8. CELECOX [Concomitant]
     Indication: RHEUMATOID ARTHRITIS
     Route: 048
  9. METGLUCO [Concomitant]
     Route: 048
  10. MAGMITT [Concomitant]
     Route: 048
  11. MUCOSTA [Concomitant]
     Route: 065
  12. IRSOGLADINE MALEATE [Concomitant]
     Route: 048
  13. OMEPRAL [Concomitant]
     Route: 065
  14. NEUROVITAN [Concomitant]
     Indication: PROPHYLAXIS
     Route: 048
  15. AMLODIN OD [Concomitant]
     Route: 048
  16. FOLIAMIN [Concomitant]
     Indication: PROPHYLAXIS
     Route: 065
  17. BONOTEO [Concomitant]
     Route: 048
  18. XYZAL [Concomitant]
     Route: 048

REACTIONS (5)
  - Radius fracture [Recovering/Resolving]
  - Ulna fracture [Recovering/Resolving]
  - Ankle fracture [Recovering/Resolving]
  - Fall [Recovered/Resolved]
  - Lymphocyte count decreased [Recovered/Resolved]
